FAERS Safety Report 16420344 (Version 2)
Quarter: 2019Q3

REPORT INFORMATION
  Report Type: Report from Study
  Country: UA (occurrence: UA)
  Receive Date: 20190612
  Receipt Date: 20190703
  Transmission Date: 20191004
  Serious: Yes (Hospitalization, Other)
  Sender: FDA-Public Use
  Company Number: UA-AMGEN-UKRCT2019090554

PATIENT
  Age: 78 Year
  Sex: Male

DRUGS (17)
  1. CARDIKET [Concomitant]
     Active Substance: ISOSORBIDE DINITRATE
     Dosage: UNK
     Dates: start: 20160216
  2. DARBEPOETIN ALFA [Suspect]
     Active Substance: DARBEPOETIN ALFA
     Dosage: 69 MICROGRAM, Q2WK
     Route: 058
     Dates: start: 20170503, end: 20170530
  3. DARBEPOETIN ALFA [Suspect]
     Active Substance: DARBEPOETIN ALFA
     Dosage: 83 MICROGRAM, Q2WK
     Route: 058
     Dates: start: 20170531, end: 20170628
  4. DARBEPOETIN ALFA [Suspect]
     Active Substance: DARBEPOETIN ALFA
     Dosage: 167 MICROGRAM, Q4WK
     Route: 058
     Dates: start: 20170629, end: 20170821
  5. DIOCOR SOLO [Concomitant]
     Dosage: UNK
     Dates: start: 20160216
  6. SORBIFER [ASCORBIC ACID;FERROUS SULFATE] [Concomitant]
     Dosage: UNK
     Dates: start: 20160501
  7. DARBEPOETIN ALFA [Suspect]
     Active Substance: DARBEPOETIN ALFA
     Dosage: 54 MICROGRAM, Q2WK
     Route: 058
     Dates: start: 20170223, end: 20170306
  8. DARBEPOETIN ALFA [Suspect]
     Active Substance: DARBEPOETIN ALFA
     Dosage: 54 MICROGRAM, Q2WK
     Route: 058
     Dates: start: 20170404, end: 20170502
  9. DARBEPOETIN ALFA [Suspect]
     Active Substance: DARBEPOETIN ALFA
     Dosage: 110 MICROGRAM, Q4WK
     Route: 058
     Dates: start: 20171212, end: 20180109
  10. DARBEPOETIN ALFA [Suspect]
     Active Substance: DARBEPOETIN ALFA
     Dosage: 139 MICROGRAM, Q4WK
     Route: 058
     Dates: start: 20170822, end: 20171211
  11. DARBEPOETIN ALFA [Suspect]
     Active Substance: DARBEPOETIN ALFA
     Indication: ANAEMIA
     Dosage: 32 MICROGRAM, QWK
     Route: 058
     Dates: start: 20170207, end: 20170222
  12. DARBEPOETIN ALFA [Suspect]
     Active Substance: DARBEPOETIN ALFA
     Dosage: 82 MICROGRAM, Q4WK
     Route: 058
     Dates: start: 20180110
  13. AGEN [Concomitant]
     Active Substance: AMLODIPINE BESYLATE
     Dosage: UNK
     Dates: start: 20160216
  14. ASCORBIC ACID. [Concomitant]
     Active Substance: ASCORBIC ACID
     Dosage: UNK
     Dates: start: 20190401, end: 20190408
  15. DARBEPOETIN ALFA [Suspect]
     Active Substance: DARBEPOETIN ALFA
     Dosage: 40 MICROGRAM, Q2WK
     Route: 058
     Dates: start: 20170307, end: 20170403
  16. CORVASAN [Concomitant]
     Dosage: UNK
     Dates: start: 20160216
  17. OXYMETAZOLINE [Concomitant]
     Active Substance: OXYMETAZOLINE
     Dosage: UNK
     Dates: start: 20190401, end: 20190405

REACTIONS (3)
  - Pyelonephritis chronic [Recovered/Resolved]
  - Ureterolithiasis [Recovered/Resolved]
  - Renal neoplasm [Not Recovered/Not Resolved]

NARRATIVE: CASE EVENT DATE: 20190428
